FAERS Safety Report 10056661 (Version 2)
Quarter: 2014Q2

REPORT INFORMATION
  Report Type: Spontaneous
  Country: US (occurrence: None)
  Receive Date: 20140401
  Receipt Date: 20140407
  Transmission Date: 20141212
  Serious: Yes (Other)
  Sender: FDA-Public Use
  Company Number: 2014-US-003465

PATIENT
  Age: 64 Year
  Sex: Female

DRUGS (9)
  1. XYREM (SODIUM OXYBATE) ORAL SOLUTION, 500MG/ML [Suspect]
     Indication: NARCOLEPSY
     Route: 048
     Dates: start: 201311
  2. XYREM (SODIUM OXYBATE) ORAL SOLUTION, 500MG/ML [Suspect]
     Indication: SOMNOLENCE
     Route: 048
     Dates: start: 201311
  3. LANTUS (INSULIN GLARGINE) [Concomitant]
  4. ASPIRIN (ACETYLSALIYLIC ACID) [Concomitant]
  5. ROPINIROLE (ROPINIROLE HYDROCHLORIDE) [Concomitant]
  6. FUROSEMIDE (FUROSEMIDE) [Concomitant]
  7. TYLENOL (PARACETAMOL) [Concomitant]
  8. GABAPENTIN (GABAPENTIN) [Concomitant]
  9. VITAMINS (ASCORBIC ACID, ERGOCALCIFEROL, NICOTINAMIDE, RETINOL, RIBOFLAVIN, THIAMINE HYDROCHLORIDE) [Concomitant]

REACTIONS (9)
  - Blood glucose increased [None]
  - Myocardial infarction [None]
  - Cerebrovascular accident [None]
  - Weight decreased [None]
  - Abasia [None]
  - Balance disorder [None]
  - Cough [None]
  - Muscular weakness [None]
  - Memory impairment [None]
